FAERS Safety Report 6741466-1 (Version None)
Quarter: 2010Q2

REPORT INFORMATION
  Report Type: 
  Country: None (occurrence: None)
  Receive Date: 20100526
  Receipt Date: 20100517
  Transmission Date: 20101027
  Serious: Yes (Other)
  Sender: FDA-Public Use
  Company Number: US-JNJFOC-20100507389

PATIENT
  Sex: Female

DRUGS (7)
  1. DURAGESIC-100 [Suspect]
     Indication: PAIN
     Route: 062
  2. DURAGESIC-100 [Suspect]
     Route: 062
  3. REGLAN [Suspect]
     Indication: DRUG USE FOR UNKNOWN INDICATION
     Route: 065
  4. HEART MEDICATION (NOS) [Concomitant]
     Route: 065
  5. OXYCODONE [Concomitant]
     Indication: BREAKTHROUGH PAIN
     Route: 048
  6. DILANTIN [Concomitant]
     Indication: CONVULSION
     Route: 065
  7. KLONOPIN [Concomitant]
     Indication: CONVULSION
     Route: 065

REACTIONS (15)
  - APPLICATION SITE BLEEDING [None]
  - APPLICATION SITE EROSION [None]
  - APPLICATION SITE PRURITUS [None]
  - BODY HEIGHT DECREASED [None]
  - BRAIN INJURY [None]
  - DETOXIFICATION [None]
  - DIARRHOEA [None]
  - DIZZINESS [None]
  - HYPERHIDROSIS [None]
  - OSTEOPOROSIS [None]
  - PAIN [None]
  - PRODUCT QUALITY ISSUE [None]
  - RHINORRHOEA [None]
  - THIRST [None]
  - VOMITING [None]
